FAERS Safety Report 22923206 (Version 2)
Quarter: 2023Q4

REPORT INFORMATION
  Report Type: Report from Study
  Country: CA (occurrence: CA)
  Receive Date: 20230908
  Receipt Date: 20231024
  Transmission Date: 20240110
  Serious: Yes (Death)
  Sender: FDA-Public Use
  Company Number: CA-BAYER-2023A126615

PATIENT
  Sex: Male

DRUGS (5)
  1. EYLEA [Suspect]
     Active Substance: AFLIBERCEPT
     Indication: Diabetic retinal oedema
     Dosage: FREQUENCY OF INJECTIONS:16 WEEKS, TOTAL AFLIBERCEPT INJECTIONS: 70 OD + 69 OS, SOL FOR INJ, 40 MG/ML
     Dates: start: 20151214, end: 20230510
  2. EYLEA [Suspect]
     Active Substance: AFLIBERCEPT
     Dosage: FREQUENCY OF INJECTIONS:16 WEEKS, TOTAL AFLIBERCEPT INJECTIONS: 70 OD + 69 O, SOL FOR INJ, 40 MG/ML
     Dates: start: 20151214, end: 20230510
  3. JANUMET [Concomitant]
     Active Substance: METFORMIN HYDROCHLORIDE\SITAGLIPTIN PHOSPHATE
     Indication: Product used for unknown indication
     Dosage: UNK
  4. METFORMIN [Concomitant]
     Active Substance: METFORMIN HYDROCHLORIDE
     Indication: Product used for unknown indication
  5. INSULIN NOS [Concomitant]
     Active Substance: INSULIN NOS
     Indication: Product used for unknown indication

REACTIONS (1)
  - Death [Fatal]
